FAERS Safety Report 4423046-6 (Version None)
Quarter: 2004Q3

REPORT INFORMATION
  Report Type: 
  Country: None (occurrence: None)
  Receive Date: 20040809
  Receipt Date: 20040809
  Transmission Date: 20050211
  Serious: Yes (Hospitalization)
  Sender: FDA-Public Use
  Company Number: None

PATIENT
  Age: 74 Year
  Sex: Male

DRUGS (1)
  1. TOBRAMYCIN [Suspect]
     Indication: OTITIS EXTERNA
     Dosage: IV Q24
     Route: 042
     Dates: start: 20040430, end: 20040509

REACTIONS (1)
  - RENAL FAILURE ACUTE [None]
